FAERS Safety Report 8987776 (Version 1)
Quarter: 2012Q4

REPORT INFORMATION
  Report Type: 
  Country: US (occurrence: US)
  Receive Date: 20121227
  Receipt Date: 20121227
  Transmission Date: 20130627
  Serious: No
  Sender: FDA-Public Use
  Company Number: US-PFIZER INC-2012328395

PATIENT
  Age: 64 Year
  Sex: Female
  Weight: 54.4 kg

DRUGS (2)
  1. ADVIL [Suspect]
     Indication: BACK PAIN
     Dosage: two tablets of 200 mg daily
     Route: 048
     Dates: end: 20121223
  2. ADVIL [Suspect]
     Indication: HEADACHE

REACTIONS (2)
  - Diarrhoea [Not Recovered/Not Resolved]
  - Product quality issue [Not Recovered/Not Resolved]
